FAERS Safety Report 9077805 (Version 1)
Quarter: 2013Q1

REPORT INFORMATION
  Report Type: Report from Study
  Country: PR (occurrence: PR)
  Receive Date: 20130130
  Receipt Date: 20130130
  Transmission Date: 20140127
  Serious: No
  Sender: FDA-Public Use
  Company Number: PR-ABBOTT-12P-131-0977509-00

PATIENT
  Sex: Female
  Weight: 86.26 kg

DRUGS (6)
  1. HUMIRA [Suspect]
     Indication: RHEUMATOID ARTHRITIS
     Route: 058
     Dates: start: 2009
  2. HYZAAR [Concomitant]
     Indication: HYPERTENSION
     Dosage: 100/12.5MG
     Route: 048
  3. FOLIC ACID [Concomitant]
     Indication: PRODUCT USED FOR UNKNOWN INDICATION
     Route: 048
  4. METHOTREXATE [Concomitant]
     Indication: PRODUCT USED FOR UNKNOWN INDICATION
     Dosage: 10MG WEEKLY
     Route: 048
  5. PREDNISONE [Concomitant]
     Indication: PAIN
     Dosage: 2 TABLETS DAILY PRN
     Route: 048
  6. TRAMADOL [Concomitant]
     Indication: PAIN
     Dosage: 50MG DAILY
     Route: 048

REACTIONS (1)
  - Ingrowing nail [Recovering/Resolving]
